FAERS Safety Report 13935837 (Version 1)
Quarter: 2017Q3

REPORT INFORMATION
  Report Type: Spontaneous
  Country: US (occurrence: US)
  Receive Date: 20170903
  Receipt Date: 20170903
  Transmission Date: 20171127
  Serious: Yes (Other)
  Sender: FDA-Public Use
  Company Number: None

PATIENT
  Sex: Male
  Weight: 81 kg

DRUGS (1)
  1. BUTRANS [Suspect]
     Active Substance: BUPRENORPHINE
     Indication: PAIN
     Dosage: ?          OTHER STRENGTH:MCG;QUANTITY:1 PATCH(ES);OTHER FREQUENCY:WEEKLY;?
     Route: 062

REACTIONS (3)
  - Application site pruritus [None]
  - Application site vesicles [None]
  - Product adhesion issue [None]

NARRATIVE: CASE EVENT DATE: 20170903
